FAERS Safety Report 7248977-3 (Version None)
Quarter: 2011Q1

REPORT INFORMATION
  Report Type: 
  Country: None (occurrence: None)
  Receive Date: 20110128
  Receipt Date: 20110121
  Transmission Date: 20110831
  Serious: Yes (Other)
  Sender: FDA-Public Use
  Company Number: US-BRISTOL-MYERS SQUIBB COMPANY-15504087

PATIENT
  Age: 50 Year
  Sex: Female

DRUGS (1)
  1. BARACLUDE [Suspect]
     Dosage: INTERRUPTED AND RESTARTED 0.5MG, DOSE REDUCED 0.25MG

REACTIONS (1)
  - TACHYCARDIA [None]
